FAERS Safety Report 14681832 (Version 1)
Quarter: 2018Q1

REPORT INFORMATION
  Report Type: Spontaneous
  Country: US (occurrence: US)
  Receive Date: 20180326
  Receipt Date: 20180326
  Transmission Date: 20180509
  Serious: Yes (Hospitalization, Other)
  Sender: FDA-Public Use
  Company Number: US-JAZZ-2017-US-003484

PATIENT
  Age: 29 Year
  Sex: Male

DRUGS (2)
  1. CLOZAPINE. [Suspect]
     Active Substance: CLOZAPINE
     Indication: HALLUCINATION, AUDITORY
  2. CLOZAPINE. [Suspect]
     Active Substance: CLOZAPINE
     Indication: BIPOLAR DISORDER
     Dosage: 500-800 MG, QD (DOSE VARIATION)
     Route: 048

REACTIONS (5)
  - Salivary hypersecretion [Recovering/Resolving]
  - Dehydration [Recovered/Resolved]
  - Vomiting [Unknown]
  - Choking sensation [Unknown]
  - Pneumonia aspiration [Recovered/Resolved]
